FAERS Safety Report 18972587 (Version 7)
Quarter: 2023Q1

REPORT INFORMATION
  Report Type: Report from Study
  Country: FR (occurrence: FR)
  Receive Date: 20210305
  Receipt Date: 20230105
  Transmission Date: 20230417
  Serious: Yes (Death, Hospitalization)
  Sender: FDA-Public Use
  Company Number: FR-TESAROUBC-2019-TSO02898-FR

PATIENT

DRUGS (2)
  1. NIRAPARIB [Suspect]
     Active Substance: NIRAPARIB
     Indication: Squamous cell carcinoma of head and neck
     Dosage: 300 MG, QD
     Route: 048
     Dates: start: 20190711, end: 20190725
  2. NIRAPARIB [Suspect]
     Active Substance: NIRAPARIB
     Dosage: UNK
     Route: 048
     Dates: end: 20190814

REACTIONS (3)
  - Blood bilirubin increased [Fatal]
  - Biliary dilatation [Fatal]
  - Small intestine carcinoma metastatic [Fatal]

NARRATIVE: CASE EVENT DATE: 20190813
